FAERS Safety Report 13649105 (Version 1)
Quarter: 2017Q2

REPORT INFORMATION
  Report Type: Spontaneous
  Country: US (occurrence: US)
  Receive Date: 20170613
  Receipt Date: 20170613
  Transmission Date: 20170830
  Serious: No
  Sender: FDA-Public Use
  Company Number: US-009507513-1705USA009887

PATIENT
  Age: 56 Year
  Sex: Female

DRUGS (1)
  1. DULERA [Suspect]
     Active Substance: FORMOTEROL FUMARATE DIHYDRATE\MOMETASONE FUROATE
     Dosage: ROUTE: INHALATION
     Route: 055
     Dates: start: 2015

REACTIONS (5)
  - Respiratory tract congestion [Not Recovered/Not Resolved]
  - Product quality issue [Unknown]
  - Product taste abnormal [Unknown]
  - Drug dose omission [Unknown]
  - No adverse event [Unknown]

NARRATIVE: CASE EVENT DATE: 20170507
